FAERS Safety Report 12991895 (Version 2)
Quarter: 2016Q4

REPORT INFORMATION
  Report Type: Spontaneous
  Country: US (occurrence: US)
  Receive Date: 20161201
  Receipt Date: 20161206
  Transmission Date: 20170207
  Serious: Yes (Other)
  Sender: FDA-Public Use
  Company Number: US-CELGENEUS-USA-2016117789

PATIENT
  Age: 52 Year
  Sex: Female

DRUGS (2)
  1. COSENTYX [Concomitant]
     Active Substance: SECUKINUMAB
     Indication: PSORIASIS
     Route: 065
     Dates: start: 201610
  2. OTEZLA [Suspect]
     Active Substance: APREMILAST
     Indication: PSORIASIS
     Dosage: 60MG
     Route: 048
     Dates: start: 20161116

REACTIONS (7)
  - Tension headache [Not Recovered/Not Resolved]
  - Retching [Not Recovered/Not Resolved]
  - Nausea [Not Recovered/Not Resolved]
  - Fatigue [Not Recovered/Not Resolved]
  - Psoriasis [Not Recovered/Not Resolved]
  - Ear haemorrhage [Not Recovered/Not Resolved]
  - Diarrhoea [Not Recovered/Not Resolved]

NARRATIVE: CASE EVENT DATE: 20161116
